FAERS Safety Report 24873291 (Version 2)
Quarter: 2025Q1

REPORT INFORMATION
  Report Type: Spontaneous
  Country: US (occurrence: US)
  Receive Date: 20250122
  Receipt Date: 20250318
  Transmission Date: 20250408
  Serious: Yes (Hospitalization, Other)
  Sender: JOHNSON AND JOHNSON
  Company Number: US-JNJFOC-20250142181

PATIENT
  Age: 34 Year
  Sex: Female

DRUGS (2)
  1. TOPAMAX [Suspect]
     Active Substance: TOPIRAMATE
     Indication: Product used for unknown indication
     Route: 048
     Dates: start: 20241002, end: 20241006
  2. TOPAMAX [Suspect]
     Active Substance: TOPIRAMATE
     Route: 048
     Dates: start: 20241002, end: 20241006

REACTIONS (22)
  - Multiple sclerosis [Unknown]
  - Suicidal ideation [Recovering/Resolving]
  - Hallucination [Recovered/Resolved]
  - Abortion spontaneous [Unknown]
  - Wrong product administered [Unknown]
  - Swelling [Not Recovered/Not Resolved]
  - Depression [Unknown]
  - Fatigue [Not Recovered/Not Resolved]
  - Brain fog [Unknown]
  - Initial insomnia [Unknown]
  - Irritability [Unknown]
  - Taste disorder [Unknown]
  - Nausea [Unknown]
  - Illusion [Unknown]
  - Back pain [Unknown]
  - Visual impairment [Unknown]
  - Dyspnoea [Unknown]
  - Feeling cold [Not Recovered/Not Resolved]
  - Mood swings [Unknown]
  - Lethargy [Unknown]
  - Subchorionic haemorrhage [Unknown]
  - Exposure during pregnancy [Unknown]

NARRATIVE: CASE EVENT DATE: 20241002
